FAERS Safety Report 24820360 (Version 1)
Quarter: 2025Q1

REPORT INFORMATION
  Report Type: Spontaneous
  Country: US (occurrence: None)
  Receive Date: 20250108
  Receipt Date: 20250108
  Transmission Date: 20250408
  Serious: No
  Sender: FDA-CTU
  Company Number: None

PATIENT
  Age: 56 Year
  Sex: Male

DRUGS (4)
  1. XCOPRI [Suspect]
     Active Substance: CENOBAMATE
     Dosage: FREQUENCY : DAILY;?
     Route: 048
     Dates: start: 20231026
  2. ROSUVASATIN [Concomitant]
  3. NAYZILAM [Concomitant]
     Active Substance: MIDAZOLAM
  4. DIVALPROEX SODIUM [Concomitant]
     Active Substance: DIVALPROEX SODIUM

REACTIONS (5)
  - Stress [None]
  - Seizure [None]
  - Head injury [None]
  - Hunger [None]
  - Micturition urgency [None]

NARRATIVE: CASE EVENT DATE: 19681221
